FAERS Safety Report 23694785 (Version 1)
Quarter: 2024Q2

REPORT INFORMATION
  Report Type: Spontaneous
  Country: IT (occurrence: IT)
  Receive Date: 20240402
  Receipt Date: 20240402
  Transmission Date: 20240716
  Serious: Yes (Other)
  Sender: FDA-Public Use
  Company Number: IT-ALKEM LABORATORIES LIMITED-SK-ALKEM-2023-07233

PATIENT
  Age: 24 Year
  Sex: Female

DRUGS (1)
  1. COLCHICINE [Suspect]
     Active Substance: COLCHICINE
     Indication: Product used for unknown indication
     Dosage: UNK, ONCE (MORE THAN 50 MILLIGRAM)
     Route: 065

REACTIONS (7)
  - Pancytopenia [Unknown]
  - Overdose [Unknown]
  - Alopecia [Unknown]
  - Abdominal pain [Unknown]
  - Nausea [Unknown]
  - Toxicity to various agents [Unknown]
  - Vomiting [Unknown]
